FAERS Safety Report 9503083 (Version 1)
Quarter: 2013Q3

REPORT INFORMATION
  Report Type: Spontaneous
  Country: US (occurrence: US)
  Receive Date: 20130906
  Receipt Date: 20130906
  Transmission Date: 20140515
  Serious: Yes (Hospitalization, Other)
  Sender: FDA-Public Use
  Company Number: US-UCBSA-096397

PATIENT
  Age: 44 Year
  Sex: Female
  Weight: 57 kg

DRUGS (16)
  1. VIMPAT [Suspect]
     Indication: CONVULSION
     Route: 048
     Dates: start: 2011, end: 2011
  2. VIMPAT [Suspect]
     Indication: CONVULSION
     Route: 048
     Dates: start: 2010, end: 2011
  3. KEPPRA [Suspect]
     Indication: CONVULSION
     Route: 048
     Dates: start: 200201, end: 2003
  4. KEPPRA [Suspect]
     Indication: CONVULSION
     Route: 048
     Dates: start: 2003, end: 2003
  5. KEPPRA [Suspect]
     Indication: CONVULSION
     Route: 048
     Dates: start: 2003, end: 200402
  6. KEPPRA [Suspect]
     Indication: CONVULSION
     Dosage: 1000 MG IN AM, 500 MG IN AFTERNOON AND 1000 MG AT NIGHT
     Dates: start: 200402, end: 201306
  7. KEPPRA [Suspect]
     Indication: CONVULSION
     Dosage: 1000 MG IN AM, 500 MG IN AFTERNOON AND 1000 MG AT NIGHT
     Dates: start: 201307, end: 20130822
  8. KEPPRA XR [Suspect]
     Indication: CONVULSION
     Dosage: UNKNOWN DOSE
     Route: 048
     Dates: start: 201306, end: 201307
  9. ZONEGRAN [Suspect]
     Indication: CONVULSION
     Dosage: UNKNOWN DOSE
     Dates: start: 2003
  10. ONFI [Concomitant]
     Indication: CONVULSION
     Dosage: 1 TAB IN AM, 1 AT 2PM, 1 IN EVENING
     Route: 048
  11. LYRICA [Concomitant]
     Indication: CONVULSION
     Dosage: 1 TAB IN AM, 1 AT 2PM, 2 TABS IN PM
     Route: 048
     Dates: start: 200509
  12. DIOVAN [Concomitant]
     Indication: HYPERTENSION
     Route: 048
     Dates: start: 2004
  13. NORVASC [Concomitant]
     Indication: HYPERTENSION
     Route: 048
     Dates: start: 2004
  14. VIVELLE PATCH [Concomitant]
     Indication: HYSTERECTOMY
     Route: 062
     Dates: start: 2002
  15. METHIMAZOLE [Concomitant]
     Indication: HYPERTHYROIDISM
     Route: 048
     Dates: start: 2009
  16. CELEBREX [Concomitant]
     Indication: ARTHRITIS
     Dosage: AS USED: NR
     Route: 048
     Dates: start: 2000

REACTIONS (21)
  - Complex partial seizures [Unknown]
  - Hyperacusis [Not Recovered/Not Resolved]
  - Ear discomfort [Not Recovered/Not Resolved]
  - Headache [Recovered/Resolved]
  - Eye pain [Not Recovered/Not Resolved]
  - Hypertension [Recovering/Resolving]
  - Cerebrovascular accident [Unknown]
  - Hemiplegia [Unknown]
  - VIIth nerve paralysis [Unknown]
  - Visual field defect [Unknown]
  - Petit mal epilepsy [Unknown]
  - Pain [Not Recovered/Not Resolved]
  - Hyperthyroidism [Recovering/Resolving]
  - Rash [Unknown]
  - Cataract [Unknown]
  - Vision blurred [Recovered/Resolved]
  - Fatigue [Recovered/Resolved]
  - Drug ineffective [Unknown]
  - Inappropriate affect [Recovered/Resolved]
  - Inappropriate schedule of drug administration [Unknown]
  - Inappropriate schedule of drug administration [Unknown]
